FAERS Safety Report 9208945 (Version 1)
Quarter: 2013Q2

REPORT INFORMATION
  Report Type: Spontaneous
  Country: US (occurrence: US)
  Receive Date: 20130404
  Receipt Date: 20130404
  Transmission Date: 20140414
  Serious: No
  Sender: FDA-Public Use
  Company Number: US-009507513-1304USA000707

PATIENT
  Age: 50 Year
  Sex: Male
  Weight: 65.76 kg

DRUGS (6)
  1. VICTRELIS [Suspect]
     Dosage: 800 MG, TID
     Route: 048
  2. RIBAVIRIN [Suspect]
     Dosage: 200 MG
  3. PEGASYS PROCLICK [Suspect]
  4. VICODIN [Concomitant]
  5. AMOXICILLIN [Concomitant]
  6. ASPIRIN [Concomitant]

REACTIONS (4)
  - Fatigue [Unknown]
  - Insomnia [Unknown]
  - Irritability [Unknown]
  - Tooth extraction [Unknown]
